FAERS Safety Report 9605053 (Version 1)
Quarter: 2013Q4

REPORT INFORMATION
  Report Type: Spontaneous
  Country: US (occurrence: US)
  Receive Date: 20131008
  Receipt Date: 20131008
  Transmission Date: 20140711
  Serious: Yes (Other)
  Sender: FDA-Public Use
  Company Number: US-PFIZER INC-2013287120

PATIENT
  Sex: 0

DRUGS (4)
  1. LYRICA [Suspect]
     Dosage: UNK
  2. PERCOCET [Suspect]
     Dosage: UNK, 5 TIMES A DAY
  3. NUCYNTA [Suspect]
     Dosage: UNK, 2X/DAY
  4. REGULAR ASPIRIN [Suspect]
     Dosage: UNK

REACTIONS (6)
  - Morbid thoughts [Unknown]
  - Vision blurred [Unknown]
  - Accident [Unknown]
  - Pain [Unknown]
  - Inflammation [Unknown]
  - Feeling abnormal [Unknown]
